FAERS Safety Report 11126188 (Version 1)
Quarter: 2015Q2

REPORT INFORMATION
  Report Type: Spontaneous
  Country: FR (occurrence: FR)
  Receive Date: 20150520
  Receipt Date: 20150520
  Transmission Date: 20150821
  Serious: Yes (Hospitalization)
  Sender: FDA-Public Use
  Company Number: FR-ASTRAZENECA-2015SE45906

PATIENT
  Age: 11160 Day
  Sex: Female

DRUGS (11)
  1. ESOMEPRAZOLE [Concomitant]
     Active Substance: ESOMEPRAZOLE
     Dates: start: 201410
  2. TEGRETOL [Suspect]
     Active Substance: CARBAMAZEPINE
     Route: 048
     Dates: start: 20141106, end: 20150119
  3. PRINCI B [Suspect]
     Active Substance: PYRIDOXINE\THIAMINE
     Route: 048
     Dates: start: 20141106, end: 20150119
  4. INEXIUM [Suspect]
     Active Substance: ESOMEPRAZOLE
     Route: 048
     Dates: start: 20141106, end: 20150119
  5. PREDNISONE. [Concomitant]
     Active Substance: PREDNISONE
     Dates: start: 201410
  6. PREGABALINE [Concomitant]
     Active Substance: PREGABALIN
     Dates: start: 201410
  7. IMUREL [Suspect]
     Active Substance: AZATHIOPRINE SODIUM
     Indication: NEUROMYELITIS OPTICA
     Route: 048
     Dates: start: 20141106, end: 20141119
  8. IMUREL [Suspect]
     Active Substance: AZATHIOPRINE SODIUM
     Indication: NEUROMYELITIS OPTICA
     Route: 048
     Dates: start: 20141120, end: 20141203
  9. B1 B6 VITAMIN [Concomitant]
     Dates: start: 201410
  10. IMUREL [Suspect]
     Active Substance: AZATHIOPRINE SODIUM
     Indication: NEUROMYELITIS OPTICA
     Route: 048
     Dates: start: 20141204, end: 20150119
  11. ACETYLLEUCINE [Concomitant]
     Active Substance: ACETYLLEUCINE
     Dates: start: 201410

REACTIONS (4)
  - Thrombocytopenia [Not Recovered/Not Resolved]
  - Lymphopenia [Recovered/Resolved]
  - Hypoplastic anaemia [Not Recovered/Not Resolved]
  - Agranulocytosis [Recovered/Resolved]

NARRATIVE: CASE EVENT DATE: 20141212
